FAERS Safety Report 9222123 (Version 7)
Quarter: 2014Q4

REPORT INFORMATION
  Report Type: Spontaneous
  Country: US (occurrence: None)
  Receive Date: 20130408
  Receipt Date: 20141124
  Transmission Date: 20150529
  Serious: Yes (Hospitalization, Other)
  Sender: FDA-Public Use
  Company Number: ADR-2013-00598

PATIENT
  Age: 50 Year
  Sex: Female

DRUGS (2)
  1. COUMADIN (WARFARIN) [Concomitant]
  2. LIORESAL [Suspect]
     Active Substance: BACLOFEN
     Indication: MUSCLE SPASTICITY
     Dosage: 83.09 MCG/DAY

REACTIONS (30)
  - Oedema [None]
  - Device malfunction [None]
  - Incontinence [None]
  - Blood pressure increased [None]
  - Treatment noncompliance [None]
  - Pain in extremity [None]
  - Device failure [None]
  - Dizziness [None]
  - Device power source issue [None]
  - Device leakage [None]
  - Suicidal ideation [None]
  - Underdose [None]
  - Muscle spasticity [None]
  - Muscle rigidity [None]
  - Dysstasia [None]
  - Crying [None]
  - Fall [None]
  - Device breakage [None]
  - Drug withdrawal syndrome [None]
  - Thrombosis [None]
  - Pain [None]
  - Economic problem [None]
  - Overdose [None]
  - Mental status changes [None]
  - Musculoskeletal stiffness [None]
  - Insomnia [None]
  - Pruritus [None]
  - Muscle spasms [None]
  - Lethargy [None]
  - Device inversion [None]
